FAERS Safety Report 5929225-0 (Version None)
Quarter: 2008Q4

REPORT INFORMATION
  Report Type: 
  Country: None (occurrence: None)
  Receive Date: 20081023
  Receipt Date: 20081023
  Transmission Date: 20090506
  Serious: Yes (Life-Threatening)
  Sender: FDA-Public Use
  Company Number: None

PATIENT
  Sex: Male
  Weight: 56.6996 kg

DRUGS (2)
  1. FOSAMAX [Suspect]
     Indication: OSTEOPOROSIS
     Dosage: 70 MG ONCE-A-WEEK PO
     Route: 048
     Dates: start: 20020414, end: 20080615
  2. DIAZEPAM [Concomitant]

REACTIONS (2)
  - AORTIC VALVE CALCIFICATION [None]
  - CATARACT [None]
